FAERS Safety Report 17840774 (Version 3)
Quarter: 2020Q3

REPORT INFORMATION
  Report Type: Spontaneous
  Country: US (occurrence: US)
  Receive Date: 20200529
  Receipt Date: 20200701
  Transmission Date: 20201103
  Serious: No
  Sender: FDA-Public Use
  Company Number: US-GLAXOSMITHKLINE-US2020AMR089469

PATIENT
  Sex: Female

DRUGS (1)
  1. ZEJULA [Suspect]
     Active Substance: NIRAPARIB
     Indication: ENDOMETRIAL CANCER
     Dosage: 100 MG, QD
     Route: 065
     Dates: start: 20200512

REACTIONS (8)
  - Fatigue [Not Recovered/Not Resolved]
  - Anxiety [Unknown]
  - Hypertension [Recovering/Resolving]
  - Off label use [Unknown]
  - Joint swelling [Unknown]
  - Product use in unapproved indication [Unknown]
  - Insomnia [Unknown]
  - Sleep disorder [Unknown]
